APPROVED DRUG PRODUCT: TEKTURNA
Active Ingredient: ALISKIREN HEMIFUMARATE
Strength: EQ 300MG BASE
Dosage Form/Route: TABLET;ORAL
Application: N021985 | Product #002 | TE Code: AB
Applicant: LXO IRELAND DESIGNATED ACTIVITY CO
Approved: Mar 5, 2007 | RLD: Yes | RS: Yes | Type: RX

PATENTS:
Patent 8617595 | Expires: Feb 19, 2026
Patent 8617595*PED | Expires: Aug 19, 2026